FAERS Safety Report 8373997-5 (Version None)
Quarter: 2012Q2

REPORT INFORMATION
  Report Type: 
  Country: None (occurrence: None)
  Receive Date: 20120521
  Receipt Date: 20120510
  Transmission Date: 20120825
  Serious: Yes (Other)
  Sender: FDA-Public Use
  Company Number: GB-GLAXOSMITHKLINE-B0776676A

PATIENT
  Sex: Female

DRUGS (5)
  1. NICOTINE [Suspect]
     Indication: EX-TOBACCO USER
     Dosage: 21MG PER DAY
     Route: 062
     Dates: start: 20120101, end: 20120117
  2. NICOTINE POLACRILEX [Concomitant]
  3. UNKNOWN MEDICATION [Concomitant]
     Route: 065
  4. EUMOVATE [Suspect]
     Indication: PRODUCT USED FOR UNKNOWN INDICATION
     Route: 065
  5. ANTIBIOTICS [Suspect]
     Indication: INFECTION
     Route: 065

REACTIONS (20)
  - DELIRIUM [None]
  - INSOMNIA [None]
  - DRY SKIN [None]
  - PRURITUS [None]
  - APPLICATION SITE RASH [None]
  - MALAISE [None]
  - ERYTHEMA [None]
  - FEELING HOT [None]
  - FATIGUE [None]
  - PYREXIA [None]
  - BLOOD PRESSURE INCREASED [None]
  - THIRST [None]
  - INFECTION [None]
  - HYPERSOMNIA [None]
  - LACERATION [None]
  - CONTUSION [None]
  - ABDOMINAL PAIN UPPER [None]
  - DIARRHOEA [None]
  - DRUG INEFFECTIVE [None]
  - EMOTIONAL DISTRESS [None]
